FAERS Safety Report 10866176 (Version 1)
Quarter: 2015Q1

REPORT INFORMATION
  Report Type: Spontaneous
  Country: US (occurrence: None)
  Receive Date: 20150219
  Receipt Date: 20150219
  Transmission Date: 20150721
  Serious: Yes (Other)
  Sender: FDA-Public Use
  Company Number: None

PATIENT
  Age: 70 Year
  Sex: Female
  Weight: 79.38 kg

DRUGS (7)
  1. ROPINIROLE HOLER [Concomitant]
  2. CARBIDOPA-LEVODOPA 25-100 TAB [Suspect]
     Active Substance: CARBIDOPA\LEVODOPA
     Indication: PARKINSON^S DISEASE
     Dosage: STRENGTH: 25-100 TAB, 1 PILL, 3 TIMES DAY, MOUTH
     Route: 048
     Dates: start: 20150108, end: 20150108
  3. AZILECT [Concomitant]
     Active Substance: RASAGILINE MESYLATE
  4. SIMVASTATIN. [Concomitant]
     Active Substance: SIMVASTATIN
  5. CLONAZEPAM. [Concomitant]
     Active Substance: CLONAZEPAM
  6. HYDROCODONE ACELAMINOPIDEN [Concomitant]
  7. LEVOTHYROXINE [Concomitant]
     Active Substance: LEVOTHYROXINE

REACTIONS (1)
  - Vomiting [None]

NARRATIVE: CASE EVENT DATE: 20150108
